FAERS Safety Report 4656448-3 (Version None)
Quarter: 2005Q2

REPORT INFORMATION
  Report Type: 
  Country: None (occurrence: None)
  Receive Date: 20050505
  Receipt Date: 20050421
  Transmission Date: 20051028
  Serious: Yes (Hospitalization)
  Sender: FDA-Public Use
  Company Number: MK200504-0264-1

PATIENT
  Age: 12 Year
  Sex: Male

DRUGS (2)
  1. TOFRANIL [Suspect]
     Dosage: 10 MG
     Dates: start: 20041101
  2. RITALINA 10MG [Suspect]
     Dosage: 10 MG
     Dates: start: 20041101, end: 20050417

REACTIONS (2)
  - BLOOD PRESSURE FLUCTUATION [None]
  - HEPATITIS B [None]
